FAERS Safety Report 12304278 (Version 1)
Quarter: 2016Q2

REPORT INFORMATION
  Report Type: Spontaneous
  Country: US (occurrence: None)
  Receive Date: 20160425
  Receipt Date: 20160425
  Transmission Date: 20160815
  Serious: Yes (Other)
  Sender: FDA-Public Use
  Company Number: None

PATIENT
  Age: 33 Year
  Sex: Female
  Weight: 86.18 kg

DRUGS (6)
  1. ESTRADIAL [Concomitant]
  2. BABY ASPRIN [Concomitant]
     Active Substance: ASPIRIN
  3. FOLIC ACID. [Concomitant]
     Active Substance: FOLIC ACID
  4. CRINONE [Suspect]
     Active Substance: PROGESTERONE
     Indication: IN VITRO FERTILISATION
     Dosage: 15 PREFILLED APPLICAT TWICE A DAY VAGINAL
     Route: 067
     Dates: start: 20160324, end: 20160412
  5. PROMETRIUM [Concomitant]
     Active Substance: PROGESTERONE
  6. DOTERRA VITAMINS [Concomitant]

REACTIONS (1)
  - Rash papular [None]

NARRATIVE: CASE EVENT DATE: 20160403
